FAERS Safety Report 19226937 (Version 1)
Quarter: 2021Q2

REPORT INFORMATION
  Report Type: Spontaneous
  Country: AT (occurrence: AT)
  Receive Date: 20210506
  Receipt Date: 20210506
  Transmission Date: 20210717
  Serious: Yes (Other)
  Sender: FDA-Public Use
  Company Number: AT-ABBVIE-21K-009-3888380-00

PATIENT
  Age: 63 Year
  Sex: Male

DRUGS (5)
  1. TRINOMIA [Concomitant]
     Indication: CARDIAC DISORDER
  2. PANTOLOC [Concomitant]
     Active Substance: PANTOPRAZOLE SODIUM
     Indication: PRODUCT USED FOR UNKNOWN INDICATION
  3. HUMIRA [Suspect]
     Active Substance: ADALIMUMAB
     Indication: CROHN^S DISEASE
     Route: 058
     Dates: start: 2012
  4. BISOLOL [Concomitant]
     Indication: CARDIAC DISORDER
  5. PREDNISOLON [Concomitant]
     Active Substance: PREDNISOLONE
     Indication: PRODUCT USED FOR UNKNOWN INDICATION

REACTIONS (18)
  - Aortic stenosis [Unknown]
  - Polyneuropathy [Unknown]
  - Cerebrovascular accident [Unknown]
  - Inguinal hernia [Unknown]
  - Tinnitus [Unknown]
  - Umbilical hernia [Unknown]
  - Osteoarthritis [Unknown]
  - Joint range of motion decreased [Unknown]
  - Hypothyroidism [Unknown]
  - Cholelithiasis [Unknown]
  - Toe amputation [Unknown]
  - Bladder cancer [Unknown]
  - Hiatus hernia [Unknown]
  - Maculopathy [Unknown]
  - Type 2 diabetes mellitus [Unknown]
  - Myocardial infarction [Unknown]
  - Rheumatic disorder [Unknown]
  - Depression [Unknown]

NARRATIVE: CASE EVENT DATE: 2012
